FAERS Safety Report 9447729 (Version 1)
Quarter: 2013Q3

REPORT INFORMATION
  Report Type: Spontaneous
  Country: JP (occurrence: JP)
  Receive Date: 20130808
  Receipt Date: 20130808
  Transmission Date: 20140515
  Serious: Yes (Hospitalization)
  Sender: FDA-Public Use
  Company Number: JP-ELI_LILLY_AND_COMPANY-JP201307011160

PATIENT
  Age: 68 Year
  Sex: Male

DRUGS (1)
  1. ZYPREXA [Suspect]
     Dosage: 20 MG, QD
     Route: 048

REACTIONS (3)
  - Crush syndrome [Unknown]
  - Fall [Unknown]
  - Neuroleptic malignant syndrome [Unknown]
